FAERS Safety Report 24984736 (Version 2)
Quarter: 2025Q2

REPORT INFORMATION
  Report Type: Spontaneous
  Country: DE (occurrence: DE)
  Receive Date: 20250219
  Receipt Date: 20250401
  Transmission Date: 20250716
  Serious: Yes (Life-Threatening, Other)
  Sender: JOHNSON AND JOHNSON
  Company Number: DE-JNJFOC-20250234140

PATIENT
  Age: 73 Year
  Sex: Female

DRUGS (1)
  1. CARVYKTI [Suspect]
     Active Substance: CILTACABTAGENE AUTOLEUCEL
     Indication: Plasma cell myeloma
     Route: 041
     Dates: start: 20240719, end: 20240719

REACTIONS (3)
  - Plasma cell myeloma [Unknown]
  - Bladder neoplasm [Unknown]
  - Therapeutic product effect decreased [Unknown]

NARRATIVE: CASE EVENT DATE: 20250212
